FAERS Safety Report 15333821 (Version 1)
Quarter: 2018Q3

REPORT INFORMATION
  Report Type: Spontaneous
  Country: US (occurrence: US)
  Receive Date: 20180825
  Receipt Date: 20180825
  Transmission Date: 20181010
  Serious: Yes (Hospitalization)
  Sender: FDA-Public Use
  Company Number: None

PATIENT
  Age: 57 Year
  Sex: Female
  Weight: 58.05 kg

DRUGS (6)
  1. DIAZEPAM. [Concomitant]
     Active Substance: DIAZEPAM
  2. MULTI VITAMIN [Concomitant]
     Active Substance: VITAMINS
  3. VITAMIN C [Concomitant]
     Active Substance: ASCORBIC ACID
  4. ARGININE [Concomitant]
     Active Substance: ARGININE
  5. KETAMINE [Suspect]
     Active Substance: KETAMINE
     Indication: SURGERY
     Route: 042
     Dates: start: 20180821, end: 20180821
  6. VITAMIN D [Concomitant]
     Active Substance: CHOLECALCIFEROL

REACTIONS (16)
  - Visual impairment [None]
  - Headache [None]
  - Nausea [None]
  - Disturbance in attention [None]
  - Pruritus [None]
  - Inadequate analgesia [None]
  - Hallucination [None]
  - Dyspnoea [None]
  - Hypophagia [None]
  - Nightmare [None]
  - Disorientation [None]
  - Decreased appetite [None]
  - Vomiting [None]
  - Dizziness [None]
  - Fatigue [None]
  - Pain in extremity [None]

NARRATIVE: CASE EVENT DATE: 20180821
